FAERS Safety Report 7969383-X (Version None)
Quarter: 2011Q4

REPORT INFORMATION
  Report Type: 
  Country: None (occurrence: None)
  Receive Date: 20111211
  Receipt Date: 20110610
  Transmission Date: 20120403
  Serious: Yes (Hospitalization, Other)
  Sender: FDA-Public Use
  Company Number: PHHY2010US68040

PATIENT
  Sex: Female

DRUGS (15)
  1. NORATIN [Concomitant]
  2. ALBUTEROL [Concomitant]
  3. PROVIGIL [Concomitant]
  4. CALCIUM [Concomitant]
  5. RESTASIS [Concomitant]
  6. NEXIUM [Concomitant]
  7. RECLAST [Concomitant]
  8. MULTI-VITAMINS [Concomitant]
  9. KLONOPIN [Concomitant]
  10. TOPROL-XL [Interacting]
     Dosage: 25 MG, BID
     Dates: end: 20101130
  11. BACLOFEN [Concomitant]
  12. VITAMIN D [Concomitant]
  13. GILENYA [Suspect]
     Indication: MULTIPLE SCLEROSIS
     Dosage: 0.5 MG, QD
     Route: 048
     Dates: start: 20101008
  14. GILENYA [Interacting]
     Dosage: 0.5 MG, QOD
     Route: 048
  15. ANTEROVERT [Concomitant]

REACTIONS (12)
  - BRONCHITIS [None]
  - INAPPROPRIATE SCHEDULE OF DRUG ADMINISTRATION [None]
  - NAUSEA [None]
  - PYREXIA [None]
  - VOMITING [None]
  - ALOPECIA [None]
  - FALL [None]
  - VIRAL INFECTION [None]
  - HEART RATE DECREASED [None]
  - HEART RATE IRREGULAR [None]
  - DRUG INTERACTION [None]
  - CHILLS [None]
